FAERS Safety Report 7354702-8 (Version None)
Quarter: 2011Q1

REPORT INFORMATION
  Report Type: 
  Country: None (occurrence: None)
  Receive Date: 20110316
  Receipt Date: 20110304
  Transmission Date: 20110831
  Serious: Yes (Other)
  Sender: FDA-Public Use
  Company Number: US-CELGENEUS-163-21880-11020489

PATIENT
  Sex: Male
  Weight: 83.3 kg

DRUGS (2)
  1. REVLIMID [Suspect]
     Dosage: 10 MILLIGRAM
     Route: 048
     Dates: start: 20101203, end: 20110101
  2. REVLIMID [Suspect]
     Indication: MULTIPLE MYELOMA
     Dosage: 10 MILLIGRAM
     Route: 048
     Dates: start: 20090528, end: 20100204

REACTIONS (12)
  - BLOOD COUNT ABNORMAL [None]
  - MUSCLE STRAIN [None]
  - DECREASED APPETITE [None]
  - NEOPLASM MALIGNANT [None]
  - OEDEMA PERIPHERAL [None]
  - NO THERAPEUTIC RESPONSE [None]
  - NAUSEA [None]
  - PAIN [None]
  - MULTIPLE MYELOMA [None]
  - RASH [None]
  - HAEMOGLOBIN DECREASED [None]
  - LABORATORY TEST ABNORMAL [None]
